FAERS Safety Report 10509946 (Version 1)
Quarter: 2014Q4

REPORT INFORMATION
  Report Type: Spontaneous
  Country: US (occurrence: None)
  Receive Date: 20141008
  Receipt Date: 20141008
  Transmission Date: 20150528
  Serious: Yes (Death, Life-Threatening)
  Sender: FDA-Public Use
  Company Number: FK201403886

PATIENT

DRUGS (2)
  1. PROPOFOL (MANUFACTURER UNKNOWN) (PROPOFOL) (PROPOFOL) [Suspect]
     Active Substance: PROPOFOL
     Indication: PRODUCT USED FOR UNKNOWN INDICATION
     Route: 042
  2. VALPROIC ACID (VALPROIC ACID) [Concomitant]
     Active Substance: VALPROIC ACID

REACTIONS (1)
  - Propofol infusion syndrome [None]
